FAERS Safety Report 21678799 (Version 1)
Quarter: 2022Q4

REPORT INFORMATION
  Report Type: Spontaneous
  Country: US (occurrence: US)
  Receive Date: 20221204
  Receipt Date: 20221204
  Transmission Date: 20230113
  Serious: No
  Sender: FDA-Public Use
  Company Number: US-SA-SAC20221201001222

PATIENT
  Age: 33 Year
  Sex: Female

DRUGS (16)
  1. AUBAGIO [Suspect]
     Active Substance: TERIFLUNOMIDE
     Indication: Multiple sclerosis
     Dosage: 1 DF, QD
     Route: 048
  2. ALBUTEROL [Concomitant]
     Active Substance: ALBUTEROL
  3. ACETAMINOPHEN [Concomitant]
     Active Substance: ACETAMINOPHEN
  4. PREDNISONE [Concomitant]
     Active Substance: PREDNISONE
  5. PLEGRIDY [Concomitant]
     Active Substance: PEGINTERFERON BETA-1A
  6. OSELTAMIVIR PHOSPHATE [Concomitant]
     Active Substance: OSELTAMIVIR PHOSPHATE
  7. ONDANSETRON [Concomitant]
     Active Substance: ONDANSETRON
  8. NUVIGIL [Concomitant]
     Active Substance: ARMODAFINIL
  9. MUCINEX [Concomitant]
     Active Substance: GUAIFENESIN
  10. MIRENA [Concomitant]
     Active Substance: LEVONORGESTREL
  11. MEDROL [Concomitant]
     Active Substance: METHYLPREDNISOLONE
  12. IBUPROFEN [Concomitant]
     Active Substance: IBUPROFEN
  13. BROMPHENIRAMINE [Concomitant]
     Active Substance: BROMPHENIRAMINE
  14. BICILLINE [Concomitant]
  15. AZITHROMYCIN [Concomitant]
     Active Substance: AZITHROMYCIN
  16. DOXYCYCLINE HYCLATE [Concomitant]
     Active Substance: DOXYCYCLINE HYCLATE

REACTIONS (3)
  - Influenza [Unknown]
  - Chills [Unknown]
  - Cough [Unknown]

NARRATIVE: CASE EVENT DATE: 20221128
